FAERS Safety Report 9163986 (Version 1)
Quarter: 2013Q1

REPORT INFORMATION
  Report Type: Spontaneous
  Country: IT (occurrence: IT)
  Receive Date: 20130314
  Receipt Date: 20130314
  Transmission Date: 20140127
  Serious: Yes (Life-Threatening, Hospitalization)
  Sender: FDA-Public Use
  Company Number: PHHY2013IT024778

PATIENT
  Sex: Male

DRUGS (3)
  1. IRINOTECAN [Suspect]
     Indication: COLON CANCER
     Dosage: 360 MG, CYCLIC
     Route: 042
     Dates: start: 20120528, end: 20120528
  2. FLUOROURACIL [Suspect]
     Indication: COLON CANCER
     Dosage: 5600 MG, CYCLIC
     Route: 042
     Dates: start: 20120528, end: 20120528
  3. BEVACIZUMAB [Suspect]
     Indication: COLON CANCER
     Dosage: 425 MG, CYCLIC
     Route: 042
     Dates: start: 20120528, end: 20120528

REACTIONS (1)
  - Atrial fibrillation [Recovered/Resolved]
